FAERS Safety Report 5811214-8 (Version None)
Quarter: 2008Q3

REPORT INFORMATION
  Report Type: 
  Country: None (occurrence: None)
  Receive Date: 20080710
  Receipt Date: 20080701
  Transmission Date: 20090109
  Serious: Yes (Hospitalization)
  Sender: FDA-Public Use
  Company Number: 2008SP013310

PATIENT

DRUGS (2)
  1. REBETOL [Suspect]
     Indication: HEPATITIS C
  2. PEGASYS [Suspect]
     Indication: HEPATITIS C

REACTIONS (7)
  - BLOOD CULTURE POSITIVE [None]
  - CHOLERA [None]
  - CONFUSIONAL STATE [None]
  - DIARRHOEA [None]
  - HYPERPYREXIA [None]
  - NAUSEA [None]
  - SALMONELLOSIS [None]
